FAERS Safety Report 18326445 (Version 1)
Quarter: 2020Q3

REPORT INFORMATION
  Report Type: Spontaneous
  Country: US (occurrence: US)
  Receive Date: 20200929
  Receipt Date: 20200929
  Transmission Date: 20201103
  Serious: No
  Sender: FDA-Public Use
  Company Number: US-PFIZER INC-2020368701

PATIENT
  Age: 57 Year
  Sex: Female
  Weight: 60.78 kg

DRUGS (1)
  1. PREMARIN [Suspect]
     Active Substance: ESTROGENS, CONJUGATED
     Indication: VAGINAL DISORDER
     Dosage: 0.5 G, TWICE WEEKLY (0.5 GRAMS VAGINALLY ON MONDAY AND THURSDAY NIGHTS, RIGHT BEFORE BED)
     Route: 067
     Dates: start: 201910

REACTIONS (4)
  - Vulvovaginal discomfort [Unknown]
  - Vulvovaginal burning sensation [Recovering/Resolving]
  - Condition aggravated [Recovering/Resolving]
  - Breast tenderness [Unknown]

NARRATIVE: CASE EVENT DATE: 202006
